FAERS Safety Report 9638663 (Version 1)
Quarter: 2013Q4

REPORT INFORMATION
  Report Type: Spontaneous
  Country: US (occurrence: US)
  Receive Date: 20131022
  Receipt Date: 20131022
  Transmission Date: 20140711
  Serious: No
  Sender: FDA-Public Use
  Company Number: US-BRISTOL-MYERS SQUIBB COMPANY-19368372

PATIENT
  Age: 70 Year
  Sex: Male
  Weight: 81.63 kg

DRUGS (1)
  1. ELIQUIS [Suspect]
     Indication: ATRIAL FIBRILLATION
     Route: 048
     Dates: start: 20130812, end: 20130828

REACTIONS (4)
  - Paraesthesia [Unknown]
  - Rash [Unknown]
  - Abdominal discomfort [Unknown]
  - Nausea [Unknown]
